FAERS Safety Report 4512193-6 (Version None)
Quarter: 2004Q4

REPORT INFORMATION
  Report Type: 
  Country: None (occurrence: None)
  Receive Date: 20041129
  Receipt Date: 20041117
  Transmission Date: 20050328
  Serious: Yes (Other)
  Sender: FDA-Public Use
  Company Number: PHBS2004JP15640

PATIENT
  Age: 83 Year
  Sex: Female

DRUGS (7)
  1. DIOVAN [Suspect]
     Dosage: 80 MG, QD
     Dates: start: 20040801
  2. AMARYL [Concomitant]
     Dosage: 1 MG, QD
     Route: 048
     Dates: start: 20040501
  3. CONIEL [Concomitant]
     Dosage: 8 MEQ, QD
     Route: 048
     Dates: start: 20040501
  4. AZOSEMIDE [Concomitant]
     Dosage: 60 MG
     Route: 048
     Dates: start: 20040801
  5. FLUITRAN [Concomitant]
     Dosage: 2 MG, QD
     Route: 048
     Dates: start: 20040501, end: 20040801
  6. MICARDIS [Concomitant]
     Dosage: 40 MG, QD
     Route: 048
     Dates: start: 20040501, end: 20040801
  7. PRAVASTATIN [Concomitant]
     Indication: HYPERLIPIDAEMIA
     Dosage: 10 MG
     Route: 048
     Dates: start: 20040801, end: 20041113

REACTIONS (2)
  - HEPATIC FUNCTION ABNORMAL [None]
  - PLATELET COUNT DECREASED [None]
